FAERS Safety Report 9919677 (Version 1)
Quarter: 2014Q1

REPORT INFORMATION
  Report Type: Spontaneous
  Country: US (occurrence: US)
  Receive Date: 20140224
  Receipt Date: 20140224
  Transmission Date: 20141002
  Serious: Yes (Other)
  Sender: FDA-Public Use
  Company Number: PHHY2014US021018

PATIENT
  Age: 3 Year
  Sex: Male
  Weight: 9 kg

DRUGS (1)
  1. CICLOSPORIN [Suspect]

REACTIONS (7)
  - Cardiac tamponade [Unknown]
  - Complement factor decreased [Unknown]
  - Hypertension [Unknown]
  - Acute graft versus host disease in skin [Recovered/Resolved]
  - Thrombotic microangiopathy [Unknown]
  - Renal failure acute [Unknown]
  - Glomerular filtration rate decreased [Unknown]
